FAERS Safety Report 13936541 (Version 1)
Quarter: 2017Q3

REPORT INFORMATION
  Report Type: Spontaneous
  Country: US (occurrence: US)
  Receive Date: 20170905
  Receipt Date: 20170905
  Transmission Date: 20171127
  Serious: Yes (Hospitalization)
  Sender: FDA-Public Use
  Company Number: US-BAYER-2017-163998

PATIENT
  Age: 60 Year
  Sex: Female

DRUGS (1)
  1. GADAVIST [Suspect]
     Active Substance: GADOBUTROL
     Indication: NUCLEAR MAGNETIC RESONANCE IMAGING
     Dosage: 7.5 ML, ONCE
     Dates: start: 20161221

REACTIONS (7)
  - Muscle spasms [None]
  - Nontherapeutic agent blood positive [None]
  - Urticaria [None]
  - Hypoaesthesia [None]
  - Nausea [None]
  - Pyrexia [None]
  - Nontherapeutic agent urine positive [None]
